FAERS Safety Report 17302814 (Version 2)
Quarter: 2021Q2

REPORT INFORMATION
  Report Type: Spontaneous
  Country: CA (occurrence: CA)
  Receive Date: 20200122
  Receipt Date: 20210628
  Transmission Date: 20210716
  Serious: Yes (Hospitalization)
  Sender: FDA-Public Use
  Company Number: CA-JNJFOC-20200125680

PATIENT
  Age: 71 Year
  Sex: Male
  Weight: 104 kg

DRUGS (16)
  1. JANUVIA [Concomitant]
     Active Substance: SITAGLIPTIN PHOSPHATE
     Route: 065
  2. AMITRIPTYLINE [Concomitant]
     Active Substance: AMITRIPTYLINE
     Route: 065
  3. ATORVASTATIN [Concomitant]
     Active Substance: ATORVASTATIN
     Route: 065
  4. PERINDOPRIL [Concomitant]
     Active Substance: PERINDOPRIL
     Route: 065
  5. PREGABALIN. [Concomitant]
     Active Substance: PREGABALIN
     Route: 065
  6. HUMALOG MIX75/25 [Concomitant]
     Active Substance: INSULIN LISPRO
     Route: 058
  7. GLICLAZIDE [Concomitant]
     Active Substance: GLICLAZIDE
     Route: 065
  8. RAMIPRIL. [Concomitant]
     Active Substance: RAMIPRIL
     Route: 065
  9. CLOPIDOGREL [Concomitant]
     Active Substance: CLOPIDOGREL BISULFATE
     Route: 065
  10. AMLODIPINE [Concomitant]
     Active Substance: AMLODIPINE BESYLATE
     Route: 065
  11. METFORMIN [Concomitant]
     Active Substance: METFORMIN HYDROCHLORIDE
     Route: 048
  12. MYRBETRIQ [Concomitant]
     Active Substance: MIRABEGRON
     Route: 048
  13. PRAVASTATIN SODIUM. [Concomitant]
     Active Substance: PRAVASTATIN SODIUM
     Route: 065
  14. FENOFIBRATE. [Concomitant]
     Active Substance: FENOFIBRATE
     Route: 065
  15. INVOKANA [Suspect]
     Active Substance: CANAGLIFLOZIN
     Indication: TYPE 2 DIABETES MELLITUS
     Route: 048
  16. JANUMET [Concomitant]
     Active Substance: METFORMIN HYDROCHLORIDE\SITAGLIPTIN PHOSPHATE
     Route: 065

REACTIONS (14)
  - Delirium [Unknown]
  - Diabetic ketoacidosis [Recovered/Resolved]
  - Fatigue [Recovered/Resolved]
  - Pollakiuria [Recovered/Resolved]
  - Glucose urine present [Recovered/Resolved]
  - Urosepsis [Recovered/Resolved]
  - Diarrhoea [Recovered/Resolved]
  - Anion gap increased [Recovered/Resolved]
  - Asthenia [Recovered/Resolved]
  - Urine ketone body present [Recovered/Resolved]
  - Pancreatitis [Unknown]
  - Atrial fibrillation [Recovered/Resolved]
  - Dysuria [Recovered/Resolved]
  - Acidosis [Unknown]
